FAERS Safety Report 4884644-9 (Version None)
Quarter: 2005Q4

REPORT INFORMATION
  Report Type: 
  Country: None (occurrence: None)
  Receive Date: 20051201
  Receipt Date: 20050921
  Transmission Date: 20060501
  Serious: No
  Sender: FDA-Public Use
  Company Number: 2005PV002368

PATIENT
  Age: 41 Year
  Sex: Female
  Weight: 75.2971 kg

DRUGS (5)
  1. BYETTA [Suspect]
     Indication: DIABETES MELLITUS NON-INSULIN-DEPENDENT
     Dosage: 5 MCG; BID; SC
     Route: 058
     Dates: start: 20050920
  2. GLUCOPHAGE [Concomitant]
  3. PREVACID [Concomitant]
  4. ULCER MEDICATION [Concomitant]
  5. ALEVE [Concomitant]

REACTIONS (1)
  - INJECTION SITE HAEMORRHAGE [None]
